FAERS Safety Report 8615956-0 (Version None)
Quarter: 2012Q3

REPORT INFORMATION
  Report Type: 
  Country: None (occurrence: None)
  Receive Date: 20120823
  Receipt Date: 20120817
  Transmission Date: 20120928
  Serious: Yes (Hospitalization)
  Sender: FDA-Public Use
  Company Number: US-ROCHE-1096491

PATIENT
  Age: 57 Year
  Sex: Female
  Weight: 57.658 kg

DRUGS (3)
  1. FLUTICASONE PROPIONATE [Concomitant]
     Indication: ASTHMA
     Dosage: 250/50; INHALATION; 2 PUFFS
  2. SINGULAIR [Concomitant]
     Indication: ASTHMA
     Route: 048
  3. XOLAIR [Suspect]
     Indication: ASTHMA
     Route: 058
     Dates: start: 20120501, end: 20120629

REACTIONS (7)
  - COUGH [None]
  - FATIGUE [None]
  - SOMNOLENCE [None]
  - MYALGIA [None]
  - WEIGHT DECREASED [None]
  - ARTHRALGIA [None]
  - DYSPNOEA [None]
